FAERS Safety Report 19010699 (Version 1)
Quarter: 2021Q1

REPORT INFORMATION
  Report Type: Report from Study
  Country: DE (occurrence: DE)
  Receive Date: 20210315
  Receipt Date: 20210315
  Transmission Date: 20210420
  Serious: Yes (Death)
  Sender: FDA-Public Use
  Company Number: DE-INCYTE CORPORATION-2021IN002030

PATIENT

DRUGS (29)
  1. JANUVIA [Concomitant]
     Active Substance: SITAGLIPTIN PHOSPHATE
     Indication: DIABETES MELLITUS
     Dosage: 100 MG, QD  (1?0?0?0?0)
     Route: 048
  2. PALLADON [Concomitant]
     Active Substance: HYDROMORPHONE
     Dosage: 1.3 MG, PRN (UP TO 3X DAILY)
     Route: 048
  3. NEBIDO [Concomitant]
     Active Substance: TESTOSTERONE UNDECANOATE
     Indication: KLINEFELTER^S SYNDROME
     Dosage: 1000 MG, Q3MO (EACH 3RD MONTH)
     Route: 058
  4. EMPAGLIFLOZIN [Concomitant]
     Active Substance: EMPAGLIFLOZIN
     Indication: DIABETES MELLITUS
     Dosage: 10 MG, QD (1?0?0)
     Route: 048
     Dates: start: 201802
  5. APOCANDA [Concomitant]
     Indication: PROPHYLAXIS
     Dosage: 10 MG, QD (1?0?0) SOLUTION
     Route: 065
     Dates: start: 201802
  6. MIRTAZAPINE. [Concomitant]
     Active Substance: MIRTAZAPINE
     Indication: SLEEP APNOEA SYNDROME
     Dosage: 45 MG, QD (0?0?0?0?1)
     Route: 048
  7. CIPROFLOXACIN. [Concomitant]
     Active Substance: CIPROFLOXACIN
     Indication: ANTIBIOTIC THERAPY
     Dosage: 500 MG, BID (1?0?1)
     Route: 048
     Dates: start: 201802, end: 20180409
  8. JAKAVI [Suspect]
     Active Substance: RUXOLITINIB
     Dosage: 15 MG, BID
     Route: 048
     Dates: start: 20180220, end: 20191001
  9. ASPIRIN. [Concomitant]
     Active Substance: ASPIRIN
     Indication: THROMBOSIS PROPHYLAXIS
     Dosage: 100 MG, QD  (0?0?1?0?0)
     Route: 048
  10. HYDROMORPHONE [Concomitant]
     Active Substance: HYDROMORPHONE
     Indication: PAIN PROPHYLAXIS
     Dosage: 4 MG, QD (0?0?1?0?0)
     Route: 048
  11. NOVORAPID [Concomitant]
     Active Substance: INSULIN ASPART
     Indication: DIABETES MELLITUS
     Dosage: 100E/ML (ACCORDING TO VALUE)
     Route: 058
     Dates: start: 201802
  12. MARIENDISTEL CURARINA [Concomitant]
     Indication: DETOXIFICATION
     Route: 048
  13. RAMILICH [Concomitant]
     Active Substance: RAMIPRIL
     Indication: HYPERTENSION
     Dosage: 10 MG, QD (1?0?0?0?0)
     Route: 048
     Dates: end: 201809
  14. METFORMIN [Concomitant]
     Active Substance: METFORMIN HYDROCHLORIDE
     Indication: DIABETES MELLITUS
     Dosage: 500 MG, BID (1?0?1?0?0)
     Route: 048
  15. ALLOPURINOL. [Concomitant]
     Active Substance: ALLOPURINOL
     Indication: RENAL FAILURE
     Dosage: 300 MG, QD (0?0?1?0?0)
     Route: 048
  16. PALLADON [Concomitant]
     Active Substance: HYDROMORPHONE
     Indication: PAIN PROPHYLAXIS
     Dosage: 8 MG, QD (1?0?0?0?0)
     Route: 048
  17. DEKRISTOL [Concomitant]
     Active Substance: CHOLECALCIFEROL
     Indication: VITAMIN D DEFICIENCY
     Dosage: 20000 IU, QW (1X WEEKLY)
     Route: 048
  18. METAMIZOLE [Concomitant]
     Active Substance: METAMIZOLE
     Indication: PAIN PROPHYLAXIS
     Dosage: 500 MG, PRN (AS NEEDED)
     Route: 048
     Dates: start: 201802
  19. JAKAVI [Suspect]
     Active Substance: RUXOLITINIB
     Indication: POLYCYTHAEMIA VERA
     Dosage: 20 MG, BID
     Route: 048
     Dates: start: 20180131, end: 20180219
  20. JAKAVI [Suspect]
     Active Substance: RUXOLITINIB
     Dosage: 10 MG, BID
     Route: 048
     Dates: start: 20191002
  21. TORASEMIDE [Concomitant]
     Active Substance: TORSEMIDE
     Indication: HYPERTENSION
     Dosage: 20 MG (1?1/2)? 0?0?0
     Route: 048
  22. PREGABALIN. [Concomitant]
     Active Substance: PREGABALIN
     Indication: PAIN PROPHYLAXIS
     Dosage: 75 MG, BID (1?0?1?0?0)
     Route: 048
  23. AMLODIPINE [Concomitant]
     Active Substance: AMLODIPINE BESYLATE
     Indication: HYPERTENSION
     Dosage: 5 MG, BID (1?0?1)
     Route: 048
     Dates: start: 201802, end: 201809
  24. PANTOPRAZOLE [Concomitant]
     Active Substance: PANTOPRAZOLE
     Indication: PROPHYLAXIS
     Dosage: 40 MG, QD (1?0?0?0?0)
     Route: 048
  25. RANITIDINE. [Concomitant]
     Active Substance: RANITIDINE
     Indication: PROPHYLAXIS
     Dosage: 150 MG, QD (0?0?1?0?0)
     Route: 048
     Dates: end: 201809
  26. TERBINAFINE. [Concomitant]
     Active Substance: TERBINAFINE
     Indication: PROPHYLAXIS
     Dosage: 250 MG, QW (1X WEEKLY)
     Route: 048
     Dates: start: 201802
  27. TRAZODONE [Concomitant]
     Active Substance: TRAZODONE HYDROCHLORIDE
     Indication: SLEEP DISORDER
     Dosage: 91.07 MG, QD (0?0?0?1/2)
     Route: 048
     Dates: start: 201802
  28. METOPROLOL. [Concomitant]
     Active Substance: METOPROLOL
     Indication: HYPERTENSION
     Dosage: 47.5 MG, QD (1?0?0)
     Route: 048
     Dates: start: 201809
  29. GLIMERID [Concomitant]
     Indication: DIABETES MELLITUS
     Dosage: 1 MG, QD (1?0?0)
     Route: 048
     Dates: start: 201809

REACTIONS (1)
  - Death [Fatal]

NARRATIVE: CASE EVENT DATE: 20201225
